FAERS Safety Report 23878084 (Version 1)
Quarter: 2024Q2

REPORT INFORMATION
  Report Type: Spontaneous
  Country: US (occurrence: US)
  Receive Date: 20240521
  Receipt Date: 20240521
  Transmission Date: 20240716
  Serious: Yes (Hospitalization)
  Sender: FDA-Public Use
  Company Number: US-GLANDPHARMA-US-2024GLNLIT00155

PATIENT
  Age: 41 Year
  Sex: Male

DRUGS (22)
  1. ZOLEDRONIC ACID [Suspect]
     Active Substance: ZOLEDRONIC ACID
     Indication: Hypercalcaemia
     Route: 042
  2. BUPRENORPHINE AND NALOXONE [Concomitant]
     Active Substance: BUPRENORPHINE HYDROCHLORIDE\NALOXONE HYDROCHLORIDE
     Indication: Drug use disorder
     Dosage: DAY 2 (SYMPTOM ONSET)
     Route: 065
  3. BUPRENORPHINE AND NALOXONE [Concomitant]
     Active Substance: BUPRENORPHINE HYDROCHLORIDE\NALOXONE HYDROCHLORIDE
     Dosage: DAY 1 (PRIOR TO SYMPTOM ONSET)
     Route: 060
  4. BUPRENORPHINE AND NALOXONE [Concomitant]
     Active Substance: BUPRENORPHINE HYDROCHLORIDE\NALOXONE HYDROCHLORIDE
     Dosage: DAY 1 (PRIOR TO SYMPTOM ONSET) ZOLEDRONATE INFUSION GIVEN
     Route: 060
  5. BUPRENORPHINE AND NALOXONE [Concomitant]
     Active Substance: BUPRENORPHINE HYDROCHLORIDE\NALOXONE HYDROCHLORIDE
     Dosage: DAY 2 (SYMPTOM ONSET)
     Route: 060
  6. BUPRENORPHINE AND NALOXONE [Concomitant]
     Active Substance: BUPRENORPHINE HYDROCHLORIDE\NALOXONE HYDROCHLORIDE
     Dosage: DAY 3 (SYMPTOM RESOLUTION)
     Route: 060
  7. SODIUM CHLORIDE [Concomitant]
     Active Substance: SODIUM CHLORIDE
     Indication: Hypercalcaemia
     Route: 065
  8. HYDROMORPHONE [Concomitant]
     Active Substance: HYDROMORPHONE
     Dosage: 4 AND 6 MG, DAY 1 (PRIOR TO SYMPTOM ONSET) ZOLEDRONATE INFUSION GIVEN
     Route: 048
  9. HYDROMORPHONE [Concomitant]
     Active Substance: HYDROMORPHONE
     Dosage: 4 AND 6 MG, DAY 2 (SYMPTOM ONSET)
     Route: 048
  10. HYDROMORPHONE [Concomitant]
     Active Substance: HYDROMORPHONE
     Dosage: 4 AND 6 MG, DAY 3 (SYMPTOM RESOLUTION)
     Route: 048
  11. CYCLOBENZAPRINE [Concomitant]
     Active Substance: CYCLOBENZAPRINE
     Indication: Product used for unknown indication
     Dosage: DAY 1 (PRIOR TO SYMPTOM ONSET) ZOLEDRONATE INFUSION GIVEN
     Route: 065
  12. CYCLOBENZAPRINE [Concomitant]
     Active Substance: CYCLOBENZAPRINE
     Dosage: DAY 2 (SYMPTOM ONSET)
     Route: 065
  13. CYCLOBENZAPRINE [Concomitant]
     Active Substance: CYCLOBENZAPRINE
     Dosage: DAY 3 (SYMPTOM RESOLUTION)
     Route: 065
  14. GABAPENTIN [Concomitant]
     Active Substance: GABAPENTIN
     Indication: Product used for unknown indication
     Dosage: DAY 1 (PRIOR TO SYMPTOM ONSET) ZOLEDRONATE INFUSION GIVEN
     Route: 065
  15. GABAPENTIN [Concomitant]
     Active Substance: GABAPENTIN
     Dosage: DAY 2 (SYMPTOM ONSET)
     Route: 065
  16. GABAPENTIN [Concomitant]
     Active Substance: GABAPENTIN
     Dosage: DAY 3 (SYMPTOM RESOLUTION)
     Route: 065
  17. ACETAMINOPHEN [Concomitant]
     Active Substance: ACETAMINOPHEN
     Indication: Product used for unknown indication
     Route: 065
  18. ACETAMINOPHEN [Concomitant]
     Active Substance: ACETAMINOPHEN
     Dosage: DAY 2 (SYMPTOM ONSET)
     Route: 065
  19. ACETAMINOPHEN [Concomitant]
     Active Substance: ACETAMINOPHEN
     Dosage: DAY 3 (SYMPTOM RESOLUTION)
     Route: 065
  20. NAPROXEN [Concomitant]
     Active Substance: NAPROXEN
     Indication: Product used for unknown indication
     Dosage: DAY 1 (PRIOR TO SYMPTOM ONSET) ZOLEDRONATE INFUSION GIVEN
     Route: 065
  21. NAPROXEN [Concomitant]
     Active Substance: NAPROXEN
     Dosage: DAY 2 (SYMPTOM ONSET)
     Route: 065
  22. NAPROXEN [Concomitant]
     Active Substance: NAPROXEN
     Dosage: DAY 3 (SYMPTOM RESOLUTION)
     Route: 065

REACTIONS (1)
  - Acute phase reaction [Recovered/Resolved]
